FAERS Safety Report 8246127-8 (Version None)
Quarter: 2012Q1

REPORT INFORMATION
  Report Type: 
  Country: None (occurrence: None)
  Receive Date: 20120330
  Receipt Date: 20120326
  Transmission Date: 20120608
  Serious: Yes (Other)
  Sender: FDA-Public Use
  Company Number: PHHY2012BR026740

PATIENT
  Age: 8 Year
  Sex: Male
  Weight: 30 kg

DRUGS (2)
  1. RITALIN LA [Suspect]
     Dosage: 20 MG,
  2. RITALIN [Suspect]
     Dosage: 10 MG,

REACTIONS (3)
  - ANXIETY [None]
  - ATTENTION DEFICIT/HYPERACTIVITY DISORDER [None]
  - THERAPEUTIC RESPONSE DECREASED [None]
